FAERS Safety Report 5094025-3 (Version None)
Quarter: 2006Q3

REPORT INFORMATION
  Report Type: 
  Country: None (occurrence: None)
  Receive Date: 20060829
  Receipt Date: 20060815
  Transmission Date: 20061208
  Serious: Yes (Other)
  Sender: FDA-Public Use
  Company Number: GXKR2006GB04783

PATIENT
  Age: 45 Year
  Sex: Male

DRUGS (5)
  1. ASPIRIN [Suspect]
     Dosage: ORAL
     Route: 048
     Dates: start: 20060208
  2. BISOPROLOL FUMARATE [Concomitant]
  3. ISOSORBIDE MONONITRATE [Concomitant]
  4. SIMVASTATIN [Concomitant]
  5. CLOPIDOGREL [Suspect]
     Dosage: 75 MG, QD, ORAL
     Route: 048

REACTIONS (1)
  - EPISTAXIS [None]
